FAERS Safety Report 4599269-2 (Version None)
Quarter: 2005Q1

REPORT INFORMATION
  Report Type: 
  Country: None (occurrence: None)
  Receive Date: 20050302
  Receipt Date: 20050302
  Transmission Date: 20050727
  Serious: Yes (Life-Threatening, Hospitalization)
  Sender: FDA-Public Use
  Company Number: None

PATIENT
  Age: 71 Year
  Sex: Female

DRUGS (6)
  1. SODIUM FERRIC GLUCONATE COMPLEX [Suspect]
     Indication: ANAEMIA OF CHRONIC DISEASE
     Dosage: 125MG  ONCE INTRAVENOUS
     Route: 042
     Dates: start: 20031216, end: 20031216
  2. SODIUM FERRIC GLUCONATE COMPLEX [Suspect]
     Indication: IRON DEFICIENCY ANAEMIA
     Dosage: 125MG  ONCE INTRAVENOUS
     Route: 042
     Dates: start: 20031216, end: 20031216
  3. PAROXETINE HCL [Concomitant]
  4. HYDROCHLOROTHIAZIDE [Concomitant]
  5. DIGOXIN [Concomitant]
  6. ENALAPRIL [Concomitant]

REACTIONS (7)
  - AMNESIA [None]
  - CHEST PAIN [None]
  - DIZZINESS [None]
  - FLUSHING [None]
  - HYPOTENSION [None]
  - LOSS OF CONSCIOUSNESS [None]
  - SYNCOPE [None]
